FAERS Safety Report 8309037-3 (Version None)
Quarter: 2012Q2

REPORT INFORMATION
  Report Type: 
  Country: None (occurrence: None)
  Receive Date: 20120424
  Receipt Date: 20120417
  Transmission Date: 20120825
  Serious: Yes (Hospitalization, Other)
  Sender: FDA-Public Use
  Company Number: US-ELI_LILLY_AND_COMPANY-US201204006201

PATIENT
  Sex: Female

DRUGS (4)
  1. ASPIRIN [Concomitant]
     Dosage: 81 MG, QD
  2. HUMULIN 70/30 [Suspect]
     Indication: DIABETES MELLITUS
     Dosage: UNK, BID
     Dates: start: 20070101
  3. METFORMIN HCL [Concomitant]
     Dosage: 1000 MG, QD
  4. PLAVIX [Concomitant]
     Dosage: 75 MG, QD

REACTIONS (2)
  - CORONARY ARTERY BYPASS [None]
  - MEMORY IMPAIRMENT [None]
